FAERS Safety Report 13653443 (Version 1)
Quarter: 2017Q2

REPORT INFORMATION
  Report Type: Spontaneous
  Country: US (occurrence: US)
  Receive Date: 20170614
  Receipt Date: 20170614
  Transmission Date: 20170830
  Serious: Yes (Other)
  Sender: FDA-Public Use
  Company Number: US-ROCHE-1240848

PATIENT
  Age: 84 Year
  Sex: Female

DRUGS (7)
  1. PROCHLORPERAZINE MALEATE. [Concomitant]
     Active Substance: PROCHLORPERAZINE MALEATE
     Indication: NAUSEA
     Dosage: AS REQUIRED
     Route: 048
  2. XELODA [Suspect]
     Active Substance: CAPECITABINE
     Indication: COLON CANCER
     Dosage: 14 DAYS ON AND 14 DAYS OFF
     Route: 048
     Dates: start: 201211
  3. ASPIR 81 [Concomitant]
     Route: 048
  4. FERROUS SULFATE. [Concomitant]
     Active Substance: FERROUS SULFATE
     Route: 048
  5. EMEND [Concomitant]
     Active Substance: APREPITANT
     Dosage: 125MG-80MG CAPSULE
     Route: 048
  6. FISH OIL [Concomitant]
     Active Substance: FISH OIL
     Route: 048
  7. VITAMIN C [Concomitant]
     Active Substance: ASCORBIC ACID
     Dosage: 1000 MG/M2
     Route: 048

REACTIONS (5)
  - Palmar-plantar erythrodysaesthesia syndrome [Not Recovered/Not Resolved]
  - Erythema [Unknown]
  - Pain in extremity [Unknown]
  - Peripheral swelling [Unknown]
  - Dry skin [Unknown]

NARRATIVE: CASE EVENT DATE: 20130506
